FAERS Safety Report 20452394 (Version 1)
Quarter: 2022Q1

REPORT INFORMATION
  Report Type: Report from Study
  Country: BE (occurrence: BE)
  Receive Date: 20220210
  Receipt Date: 20220210
  Transmission Date: 20220424
  Serious: Yes (Death, Hospitalization)
  Sender: FDA-Public Use
  Company Number: BE-ABBVIE-22K-013-4253458-00

PATIENT
  Sex: Male
  Weight: 82 kg

DRUGS (14)
  1. CARBIDOPA\LEVODOPA [Suspect]
     Active Substance: CARBIDOPA\LEVODOPA
     Indication: Parkinson^s disease
     Route: 050
     Dates: start: 20120206
  2. CARBIDOPA\LEVODOPA [Suspect]
     Active Substance: CARBIDOPA\LEVODOPA
     Dosage: MD: 1.4 ML, CD: 3.7 ML/HR; REMAINS AT 16 HOURS, ED: 2.6 ML
     Route: 050
     Dates: start: 20210705, end: 20211230
  3. CARBIDOPA\LEVODOPA [Suspect]
     Active Substance: CARBIDOPA\LEVODOPA
     Dosage: MD: 1.4 ML, CD: 3.7 ML/HR; REMAINS AT 16 HOURS, ED: 2.6 ML
     Route: 050
     Dates: start: 20211230
  4. AZILECT [Concomitant]
     Active Substance: RASAGILINE MESYLATE
     Indication: Product used for unknown indication
     Dosage: AT 5:00 HOURS
  5. COMTAN [Concomitant]
     Active Substance: ENTACAPONE
     Indication: Product used for unknown indication
     Dosage: AT 8:00, 11:00, 14:00, 17:00 AND 19:00HR
  6. BENSERAZIDE\LEVODOPA [Concomitant]
     Active Substance: BENSERAZIDE\LEVODOPA
     Indication: Product used for unknown indication
     Dosage: AT 5:00 HRS
  7. BENSERAZIDE\LEVODOPA [Concomitant]
     Active Substance: BENSERAZIDE\LEVODOPA
     Indication: Product used for unknown indication
     Dosage: 0.5 TABLET, AT 8:00, 14:00, 17:00 AND 19:00 HRS
  8. BENSERAZIDE\LEVODOPA [Concomitant]
     Active Substance: BENSERAZIDE\LEVODOPA
     Dosage: 0.75 TABLET, AT 11:00 HRS
  9. REQUIP [Concomitant]
     Active Substance: ROPINIROLE HYDROCHLORIDE
     Indication: Product used for unknown indication
     Dosage: REQUIP MODUTAB, AT 18:00 HRS
  10. REQUIP [Concomitant]
     Active Substance: ROPINIROLE HYDROCHLORIDE
     Dosage: AT 5:00 HRS
  11. REQUIP [Concomitant]
     Active Substance: ROPINIROLE HYDROCHLORIDE
     Dosage: AT 5:00 HRS
  12. SEDINAL [Concomitant]
     Indication: Product used for unknown indication
     Dosage: IN THE EVENING
  13. BENSERAZIDE\LEVODOPA [Concomitant]
     Active Substance: BENSERAZIDE\LEVODOPA
     Indication: Product used for unknown indication
     Dosage: IN THE EVENING
  14. SEROQUEL [Concomitant]
     Active Substance: QUETIAPINE FUMARATE
     Indication: Product used for unknown indication
     Dosage: IN THE MORNING AND EVENING

REACTIONS (3)
  - General physical health deterioration [Fatal]
  - Hospitalisation [Not Recovered/Not Resolved]
  - Device dislocation [Recovered/Resolved]

NARRATIVE: CASE EVENT DATE: 20210101
